FAERS Safety Report 4833107-5 (Version None)
Quarter: 2005Q4

REPORT INFORMATION
  Report Type: 
  Country: None (occurrence: None)
  Receive Date: 20051121
  Receipt Date: 20051109
  Transmission Date: 20060501
  Serious: Yes (Hospitalization)
  Sender: FDA-Public Use
  Company Number: US-ROCHE-424052

PATIENT
  Age: 24 Year
  Sex: Male

DRUGS (3)
  1. DIAZEPAM [Suspect]
     Indication: DRUG USE FOR UNKNOWN INDICATION
     Route: 065
  2. METADONE [Suspect]
     Indication: DRUG USE FOR UNKNOWN INDICATION
     Route: 065
  3. METADONE [Suspect]
     Route: 065

REACTIONS (12)
  - ACCIDENTAL OVERDOSE [None]
  - APATHY [None]
  - COGNITIVE DISORDER [None]
  - DEMYELINATION [None]
  - DISTURBANCE IN ATTENTION [None]
  - HYPOXIC ENCEPHALOPATHY [None]
  - INCONTINENCE [None]
  - INJURY [None]
  - MEMORY IMPAIRMENT [None]
  - OVERDOSE [None]
  - PAIN [None]
  - PERIPHERAL ISCHAEMIA [None]
